FAERS Safety Report 25176160 (Version 2)
Quarter: 2025Q2

REPORT INFORMATION
  Report Type: Report from Study
  Country: BR (occurrence: BR)
  Receive Date: 20250409
  Receipt Date: 20250530
  Transmission Date: 20250717
  Serious: Yes (Other)
  Sender: NOVO NORDISK
  Company Number: BR-NOVOPROD-1400585

PATIENT
  Sex: Male
  Weight: 92 kg

DRUGS (2)
  1. FIASP [Suspect]
     Active Substance: INSULIN ASPART
     Indication: Diabetes mellitus
     Dosage: 16 IU, QD (AT NIGHT)
  2. XULTOPHY 100/3.6 [Suspect]
     Active Substance: INSULIN DEGLUDEC\LIRAGLUTIDE
     Indication: Diabetes mellitus
     Dosage: 18 IU, QD (AT NIGHT)

REACTIONS (3)
  - Diabetes mellitus inadequate control [Unknown]
  - Incorrect dose administered by device [Unknown]
  - Blood glucose increased [Unknown]
